FAERS Safety Report 7674964-7 (Version None)
Quarter: 2011Q3

REPORT INFORMATION
  Report Type: 
  Country: None (occurrence: None)
  Receive Date: 20110810
  Receipt Date: 20110801
  Transmission Date: 20111222
  Serious: Yes (Other)
  Sender: FDA-Public Use
  Company Number: JP-SANOFI-AVENTIS-2011SA049474

PATIENT

DRUGS (4)
  1. CISPLATIN [Suspect]
     Indication: SQUAMOUS CELL CARCINOMA
     Dosage: ON DAY 2 OF EVERY CYCLE
     Route: 040
  2. FLUOROURACIL [Suspect]
     Indication: SQUAMOUS CELL CARCINOMA
     Dosage: 600-700 MG/M2 FROM DAY 1 THROUGH DAY 5 IN A CYCLE
     Route: 042
  3. DOCETAXEL [Suspect]
     Indication: SQUAMOUS CELL CARCINOMA
     Dosage: ON DAY 2 OF EVERY CYCLE
     Route: 040
  4. THERAPEUTIC RADIOPHARMACEUTICALS [Suspect]
     Indication: SQUAMOUS CELL CARCINOMA
     Dosage: 2 GY/ FRACTION EVERY WEEKDAY(5 FRACTIONS PER WEEK) AND TOTAL DOSE OF 70 GY.
     Route: 065

REACTIONS (13)
  - ASPARTATE AMINOTRANSFERASE INCREASED [None]
  - LYMPHOCYTE COUNT DECREASED [None]
  - HAEMOGLOBIN DECREASED [None]
  - RADIATION SKIN INJURY [None]
  - GRANULOCYTE COUNT DECREASED [None]
  - HYPOKALAEMIA [None]
  - BONE MARROW FAILURE [None]
  - LEUKOPENIA [None]
  - HYPONATRAEMIA [None]
  - HYPERKALAEMIA [None]
  - HEPATIC FUNCTION ABNORMAL [None]
  - PLATELET COUNT DECREASED [None]
  - NEUTROPENIA [None]
